FAERS Safety Report 4452490-6 (Version None)
Quarter: 2004Q3

REPORT INFORMATION
  Report Type: 
  Country: None (occurrence: None)
  Receive Date: 20040916
  Receipt Date: 20040902
  Transmission Date: 20050211
  Serious: No
  Sender: FDA-Public Use
  Company Number: FR-2004-031176

PATIENT
  Age: 35 Year
  Sex: Female

DRUGS (1)
  1. MIRENA [Suspect]
     Dosage: 20 UG, CONT, INTRA-UTERINE
     Route: 015
     Dates: start: 20020101, end: 20040101

REACTIONS (2)
  - ADENOMYOSIS [None]
  - URINARY INCONTINENCE [None]
